FAERS Safety Report 6779571-6 (Version None)
Quarter: 2010Q2

REPORT INFORMATION
  Report Type: 
  Country: None (occurrence: None)
  Receive Date: 20100618
  Receipt Date: 20100611
  Transmission Date: 20101027
  Serious: Yes (Hospitalization)
  Sender: FDA-Public Use
  Company Number: A0855485A

PATIENT
  Age: 65 Year
  Sex: Male

DRUGS (24)
  1. ADVAIR DISKUS 100/50 [Suspect]
     Indication: CHRONIC OBSTRUCTIVE PULMONARY DISEASE
     Dosage: 1PUFF TWICE PER DAY
     Route: 055
     Dates: start: 20070101
  2. OXYGEN [Concomitant]
  3. NEBULIZER [Concomitant]
  4. LYRICA [Concomitant]
  5. OMEPRAZOLE [Concomitant]
  6. FUROSEMIDE [Concomitant]
  7. LEVOTHYROXINE SODIUM [Concomitant]
  8. POTASSIUM CHLORIDE [Concomitant]
  9. TERAZOSIN HCL [Concomitant]
  10. SPIRONOLACTONE [Concomitant]
  11. BENAZEPRIL HYDROCHLORIDE [Concomitant]
  12. METFORMIN [Concomitant]
  13. INSULIN [Concomitant]
  14. CARVEDILOL [Concomitant]
  15. GLYBURIDE [Concomitant]
  16. PREDNISONE [Concomitant]
  17. TRAZODONE HYDROCHLORIDE [Concomitant]
  18. LIPITOR [Concomitant]
  19. FENTANYL [Concomitant]
  20. MORPHINE [Concomitant]
  21. VITAMIN B-12 [Concomitant]
  22. LORAZEPAM [Concomitant]
  23. CALCIUM CARBONATE [Concomitant]
  24. IBUPROFEN [Concomitant]

REACTIONS (11)
  - DEBRIDEMENT [None]
  - DYSPNOEA [None]
  - FOOT AMPUTATION [None]
  - HEADACHE [None]
  - PULMONARY FUNCTION TEST DECREASED [None]
  - PULMONARY THROMBOSIS [None]
  - PYREXIA [None]
  - SINUSITIS [None]
  - SKIN ULCER [None]
  - STAPHYLOCOCCAL INFECTION [None]
  - TOE AMPUTATION [None]
